FAERS Safety Report 8872084 (Version 1)
Quarter: 2012Q4

REPORT INFORMATION
  Report Type: Spontaneous
  Country: US (occurrence: None)
  Receive Date: 20121026
  Receipt Date: 20121026
  Transmission Date: 20130627
  Serious: No
  Sender: FDA-Public Use
  Company Number: None

PATIENT
  Age: 54 Year
  Sex: Male
  Weight: 78.2 kg

DRUGS (2)
  1. SULFAMETHOXAZOLE/TRIMETHOPRIM [Suspect]
     Dosage: MG BID PO
     Route: 048
     Dates: start: 20120821, end: 20120831
  2. DOXYCYCLINE [Suspect]
     Dosage: 100 MG BID PO
     Route: 048
     Dates: start: 20120821, end: 20120831

REACTIONS (2)
  - Thrombocytopenia [None]
  - Rash morbilliform [None]
